FAERS Safety Report 6417119-6 (Version None)
Quarter: 2009Q4

REPORT INFORMATION
  Report Type: 
  Country: None (occurrence: None)
  Receive Date: 20091026
  Receipt Date: 20091021
  Transmission Date: 20100525
  Serious: Yes (Other)
  Sender: FDA-Public Use
  Company Number: IE-EBEWE-1593CARBO09

PATIENT
  Age: 5 Year
  Sex: Male

DRUGS (2)
  1. CARBOPLATIN [Suspect]
     Indication: GLIOMA
     Dosage: 450 MG, IV
     Route: 042
     Dates: start: 20090612
  2. VINCRISTINE [Suspect]
     Indication: GLIOMA
     Dosage: 1.2 MG, IV
     Route: 042
     Dates: start: 20090612

REACTIONS (3)
  - COUGH [None]
  - FLUSHING [None]
  - HYPERSENSITIVITY [None]
